FAERS Safety Report 9957892 (Version 2)
Quarter: 2014Q1

REPORT INFORMATION
  Report Type: Report from Study
  Country: US (occurrence: US)
  Receive Date: 20140304
  Receipt Date: 20140304
  Transmission Date: 20141002
  Serious: No
  Sender: FDA-Public Use
  Company Number: US-ABBVIE-13P-163-1054783-00

PATIENT
  Age: 59 Year
  Sex: Male
  Weight: 104.42 kg

DRUGS (3)
  1. HUMIRA [Suspect]
     Indication: PSORIASIS
     Dates: start: 2011
  2. PROPANOLOL [Concomitant]
     Indication: HYPERTENSION
  3. UNNAMED BETA BLOCKER [Concomitant]
     Indication: HYPERTROPHIC CARDIOMYOPATHY

REACTIONS (5)
  - Device malfunction [Unknown]
  - Injection site pain [Unknown]
  - Inappropriate schedule of drug administration [Unknown]
  - Incorrect dose administered [Unknown]
  - Injection site pain [Not Recovered/Not Resolved]
